FAERS Safety Report 5641519-5 (Version None)
Quarter: 2008Q1

REPORT INFORMATION
  Report Type: 
  Country: None (occurrence: None)
  Receive Date: 20080227
  Receipt Date: 20071016
  Transmission Date: 20080703
  Serious: No
  Sender: FDA-Public Use
  Company Number: A0687882A

PATIENT

DRUGS (1)
  1. NICORETTE [Suspect]
     Dates: start: 20060901

REACTIONS (1)
  - INTENTIONAL DRUG MISUSE [None]
